FAERS Safety Report 4628531-X (Version None)
Quarter: 2005Q2

REPORT INFORMATION
  Report Type: 
  Country: None (occurrence: None)
  Receive Date: 20050404
  Receipt Date: 20050329
  Transmission Date: 20051028
  Serious: Yes (Life-Threatening)
  Sender: FDA-Public Use
  Company Number: 2005CG00626

PATIENT
  Age: 78 Year
  Sex: Female

DRUGS (5)
  1. ZESTRIL [Suspect]
     Dates: end: 20050103
  2. ALDACTONE [Suspect]
     Dates: start: 20050103
  3. DEXTROPROPOXYPHENE [Suspect]
     Dates: end: 20050103
  4. PRAVASTATIN [Suspect]
     Dates: end: 20050103
  5. LASILIX [Concomitant]

REACTIONS (2)
  - HYPERCAPNIC ENCEPHALOPATHY [None]
  - RESPIRATORY ACIDOSIS [None]
